FAERS Safety Report 7781220-5 (Version None)
Quarter: 2011Q3

REPORT INFORMATION
  Report Type: 
  Country: None (occurrence: None)
  Receive Date: 20110927
  Receipt Date: 20110920
  Transmission Date: 20111222
  Serious: Yes (Other)
  Sender: FDA-Public Use
  Company Number: JP-GLAXOSMITHKLINE-B0750279A

PATIENT
  Age: 60 Year
  Sex: Female

DRUGS (3)
  1. TRANQUILIZER [Concomitant]
  2. NICOTINE [Suspect]
     Indication: EX-TOBACCO USER
     Route: 062
  3. SLEEPING MEDICATION [Concomitant]

REACTIONS (2)
  - ANGINA PECTORIS [None]
  - SLEEP DISORDER [None]
